FAERS Safety Report 5658222-8 (Version None)
Quarter: 2008Q1

REPORT INFORMATION
  Report Type: 
  Country: None (occurrence: None)
  Receive Date: 20080310
  Receipt Date: 20070307
  Transmission Date: 20080703
  Serious: No
  Sender: FDA-Public Use
  Company Number: US-BAYER-200710145BCC

PATIENT
  Age: 80 Year
  Sex: Male
  Weight: 72 kg

DRUGS (8)
  1. ALEVE [Suspect]
     Indication: BACK PAIN
     Dosage: TOTAL DAILY DOSE: 220 MG  UNIT DOSE: 220 MG
     Route: 048
     Dates: start: 20070101, end: 20070201
  2. PLAVIX [Concomitant]
     Dates: start: 20061201
  3. TOPROL [Concomitant]
     Dates: start: 20061201
  4. LOPRESSOR [Concomitant]
  5. CARDURA [Concomitant]
     Dates: start: 19920201
  6. ZOCOR [Concomitant]
     Dates: start: 19920201
  7. ALTACE [Concomitant]
     Dates: start: 19920201
  8. ASPIRIN [Concomitant]
     Dates: start: 19920201

REACTIONS (1)
  - ERECTILE DYSFUNCTION [None]
